FAERS Safety Report 8577565-1 (Version None)
Quarter: 2012Q3

REPORT INFORMATION
  Report Type: 
  Country: None (occurrence: None)
  Receive Date: 20120807
  Receipt Date: 20120719
  Transmission Date: 20120928
  Serious: No
  Sender: FDA-Public Use
  Company Number: US-ASTRAZENECA-2011SE58824

PATIENT
  Age: 54 Year
  Sex: Female

DRUGS (2)
  1. SEROQUEL [Suspect]
     Route: 048
  2. SEROQUEL [Suspect]
     Route: 048

REACTIONS (10)
  - ABNORMAL BEHAVIOUR [None]
  - PAIN [None]
  - VOMITING [None]
  - FOOD POISONING [None]
  - ADVERSE EVENT [None]
  - INSOMNIA [None]
  - BIPOLAR DISORDER [None]
  - OSTEOARTHRITIS [None]
  - ARTHRITIS [None]
  - DRUG DOSE OMISSION [None]
